FAERS Safety Report 6698427-0 (Version None)
Quarter: 2010Q2

REPORT INFORMATION
  Report Type: 
  Country: None (occurrence: None)
  Receive Date: 20100427
  Receipt Date: 20100421
  Transmission Date: 20101027
  Serious: No
  Sender: FDA-Public Use
  Company Number: GB-ROCHE-698432

PATIENT

DRUGS (1)
  1. OSELTAMIVIR PHOSPHATE [Suspect]
     Dosage: ANOTHER INDICATION: POSSIBLE ASPIRATION PNEUMONIA
     Route: 064

REACTIONS (2)
  - NO ADVERSE EVENT [None]
  - NORMAL NEWBORN [None]
